FAERS Safety Report 7412665-0 (Version None)
Quarter: 2011Q2

REPORT INFORMATION
  Report Type: 
  Country: None (occurrence: None)
  Receive Date: 20110413
  Receipt Date: 20110408
  Transmission Date: 20111010
  Serious: Yes (Hospitalization)
  Sender: FDA-Public Use
  Company Number: GB-ABBOTT-11P-167-0717795-00

PATIENT
  Age: 59 Year
  Sex: Male

DRUGS (4)
  1. TEGRETOL [Suspect]
     Indication: EPILEPSY
     Route: 048
  2. LANSOPRAZOLE [Concomitant]
     Indication: PRODUCT USED FOR UNKNOWN INDICATION
  3. LEVOTHYROXINE [Suspect]
     Indication: HYPOTHYROIDISM
     Route: 048
  4. VALPROATE SODIUM [Suspect]
     Indication: EPILEPSY
     Route: 048

REACTIONS (4)
  - PAPULE [None]
  - PRURITUS [None]
  - RASH [None]
  - PETECHIAE [None]
